FAERS Safety Report 14052166 (Version 2)
Quarter: 2018Q4

REPORT INFORMATION
  Report Type: Spontaneous
  Country: JP (occurrence: JP)
  Receive Date: 20171005
  Receipt Date: 20181009
  Transmission Date: 20190204
  Serious: No
  Sender: FDA-Public Use
  Company Number: JP-BAYER-2017-186018

PATIENT
  Sex: Female

DRUGS (1)
  1. YAZ [Suspect]
     Active Substance: DROSPIRENONE\ETHINYL ESTRADIOL
     Route: 048

REACTIONS (3)
  - Headache [None]
  - Pain in extremity [None]
  - Dyspnoea [None]
